FAERS Safety Report 20123297 (Version 1)
Quarter: 2021Q4

REPORT INFORMATION
  Report Type: Spontaneous
  Country: JP (occurrence: JP)
  Receive Date: 20211129
  Receipt Date: 20211129
  Transmission Date: 20220303
  Serious: Yes (Other)
  Sender: FDA-Public Use
  Company Number: JP-SA-2021SA391739

PATIENT
  Age: 39 Year
  Sex: Female

DRUGS (5)
  1. CLARITHROMYCIN [Suspect]
     Active Substance: CLARITHROMYCIN
     Indication: Mycobacterial infection
     Dosage: 6 MONTHS POSTPARTUM
  2. RIFAMPIN [Suspect]
     Active Substance: RIFAMPIN
     Indication: Mycobacterial infection
     Dosage: 6 MONTHS POSTPARTUM
  3. ETHAMBUTOL [Suspect]
     Active Substance: ETHAMBUTOL HYDROCHLORIDE
     Indication: Mycobacterial infection
     Dosage: 6 MONTHS POSTPARTUM
  4. PREDNISONE [Suspect]
     Active Substance: PREDNISONE
     Indication: Sarcoidosis
     Dosage: 1 MG/KG
  5. PREDNISONE [Suspect]
     Active Substance: PREDNISONE
     Dosage: DOSE TAPERED

REACTIONS (6)
  - Acute kidney injury [Unknown]
  - Leukopenia [Unknown]
  - Liver disorder [Unknown]
  - Pyrexia [Unknown]
  - Rebound effect [Unknown]
  - Splenomegaly [Unknown]
